FAERS Safety Report 7649892-3 (Version None)
Quarter: 2011Q3

REPORT INFORMATION
  Report Type: 
  Country: None (occurrence: None)
  Receive Date: 20110802
  Receipt Date: 20110718
  Transmission Date: 20111222
  Serious: Yes (Other)
  Sender: FDA-Public Use
  Company Number: US-ELI_LILLY_AND_COMPANY-US201002002363

PATIENT
  Sex: Female

DRUGS (2)
  1. FORTEO [Suspect]
     Indication: OSTEOPOROSIS
     Dosage: 20 UG, DAILY (1/D)
     Dates: start: 20091030
  2. FORTEO [Suspect]
     Dosage: 20 UG, QD

REACTIONS (3)
  - LOWER LIMB FRACTURE [None]
  - INJECTION SITE HAEMORRHAGE [None]
  - FALL [None]
